FAERS Safety Report 11207026 (Version 1)
Quarter: 2015Q2

REPORT INFORMATION
  Report Type: Report from Study
  Country: US (occurrence: US)
  Receive Date: 20150622
  Receipt Date: 20150622
  Transmission Date: 20150821
  Serious: No
  Sender: FDA-Public Use
  Company Number: US-ABBVIE-15P-163-1389514-00

PATIENT
  Age: 62 Year
  Sex: Female
  Weight: 64.47 kg

DRUGS (3)
  1. VIEKIRA PAK [Suspect]
     Active Substance: DASABUVIR\OMBITASVIR\PARITAPREVIR\RITONAVIR
     Indication: HEPATITIS C VIRUS TEST POSITIVE
     Route: 048
     Dates: start: 20150507, end: 20150511
  2. OMEPRAZOLE. [Concomitant]
     Active Substance: OMEPRAZOLE
     Indication: GASTROOESOPHAGEAL REFLUX DISEASE
     Route: 048
     Dates: start: 201505
  3. VIEKIRA PAK [Suspect]
     Active Substance: DASABUVIR\OMBITASVIR\PARITAPREVIR\RITONAVIR
     Dosage: 3 AND 1
     Route: 048
     Dates: start: 20150511

REACTIONS (3)
  - Lymphadenopathy [Not Recovered/Not Resolved]
  - Dysphagia [Not Recovered/Not Resolved]
  - Drug administration error [Not Recovered/Not Resolved]

NARRATIVE: CASE EVENT DATE: 20150507
